FAERS Safety Report 11443887 (Version 5)
Quarter: 2016Q1

REPORT INFORMATION
  Report Type: Report from Study
  Country: US (occurrence: US)
  Receive Date: 20150901
  Receipt Date: 20160208
  Transmission Date: 20160525
  Serious: Yes (Hospitalization, Other)
  Sender: FDA-Public Use
  Company Number: US-GILEAD-2015-0166961

PATIENT
  Age: 74 Year
  Sex: Female
  Weight: 45.81 kg

DRUGS (14)
  1. TYVASO [Suspect]
     Active Substance: TREPROSTINIL
     Indication: PULMONARY HYPERTENSION
     Dosage: 18-54 MCG, QID
     Route: 055
     Dates: start: 20150420
  2. LASIX [Concomitant]
     Active Substance: FUROSEMIDE
  3. AMBRISENTAN [Suspect]
     Active Substance: AMBRISENTAN
     Indication: MIXED CONNECTIVE TISSUE DISEASE
  4. DIGOXIN. [Concomitant]
     Active Substance: DIGOXIN
     Dosage: 0.125 MG, UNK
  5. AMBRISENTAN [Suspect]
     Active Substance: AMBRISENTAN
     Indication: PULMONARY HYPERTENSION
     Dosage: 10 MG, UNK
     Route: 065
     Dates: end: 20150720
  6. OMEPRAZOLE. [Concomitant]
     Active Substance: OMEPRAZOLE
     Dosage: 20 MG, QD
  7. AMBRISENTAN [Suspect]
     Active Substance: AMBRISENTAN
     Indication: SCLERODERMA
  8. LIPITOR [Concomitant]
     Active Substance: ATORVASTATIN CALCIUM
     Dosage: 40 MG, QD
  9. MAGNESIUM OXIDE. [Concomitant]
     Active Substance: MAGNESIUM OXIDE
     Dosage: 400 MG, QD
  10. ALDACTONE [Concomitant]
     Active Substance: SPIRONOLACTONE
     Dosage: 25 MG, QD
  11. ASPIRIN                            /00002701/ [Concomitant]
     Active Substance: ASPIRIN
     Dosage: 81 MG, QD
  12. CARDIZEM [Concomitant]
     Active Substance: DILTIAZEM HYDROCHLORIDE
     Dosage: 120 DF, QD
  13. ADEMPAS [Suspect]
     Active Substance: RIOCIGUAT
     Indication: PULMONARY HYPERTENSION
     Dosage: 2 DF, TID
     Route: 065
     Dates: start: 201506, end: 201507
  14. COUMADIN [Concomitant]
     Active Substance: WARFARIN SODIUM
     Dosage: 2 MG, QD

REACTIONS (12)
  - Diastolic dysfunction [Unknown]
  - Pleural effusion [Recovered/Resolved]
  - Pulmonary arterial wedge pressure increased [Unknown]
  - Anaemia [Unknown]
  - Cardiac failure congestive [Unknown]
  - Right ventricular failure [Unknown]
  - Pulmonary arterial hypertension [Unknown]
  - Left ventricular dysfunction [Unknown]
  - Pulmonary oedema [Unknown]
  - Chronic kidney disease [Unknown]
  - Dyspnoea [Recovered/Resolved]
  - Vascular resistance pulmonary decreased [Unknown]

NARRATIVE: CASE EVENT DATE: 20150716
